FAERS Safety Report 5959120-2 (Version None)
Quarter: 2008Q4

REPORT INFORMATION
  Report Type: 
  Country: None (occurrence: None)
  Receive Date: 20081120
  Receipt Date: 20080118
  Transmission Date: 20090506
  Serious: No
  Sender: FDA-Public Use
  Company Number: A0702199A

PATIENT
  Age: 52 Year
  Sex: Female
  Weight: 56.4 kg

DRUGS (6)
  1. WELLBUTRIN SR [Suspect]
     Indication: DRUG USE FOR UNKNOWN INDICATION
     Dosage: 150MG PER DAY
     Route: 048
     Dates: start: 20071101
  2. IMMUNE GLOBULIN INTRAVENOUS (HUMAN) [Concomitant]
     Dosage: 20G MONTHLY
     Route: 042
  3. CLARITIN-D [Concomitant]
  4. VITAMIN D [Concomitant]
     Dosage: 40000UD TWO TIMES PER WEEK
  5. ADVAIR DISKUS 100/50 [Concomitant]
  6. SPIRIVA [Concomitant]

REACTIONS (2)
  - ABDOMINAL PAIN [None]
  - DIARRHOEA [None]
